FAERS Safety Report 25597907 (Version 2)
Quarter: 2025Q3

REPORT INFORMATION
  Report Type: Spontaneous
  Country: IL (occurrence: IL)
  Receive Date: 20250723
  Receipt Date: 20250724
  Transmission Date: 20251021
  Serious: Yes (Death, Hospitalization, Other)
  Sender: MERCK SHARP & DOHME LLC
  Company Number: IL-009507513-2311322

PATIENT
  Age: 82 Year
  Sex: Male

DRUGS (8)
  1. PEMBROLIZUMAB [Suspect]
     Active Substance: PEMBROLIZUMAB
     Indication: Transitional cell carcinoma metastatic
     Dates: start: 202404, end: 202411
  2. ENFORTUMAB VEDOTIN [Suspect]
     Active Substance: ENFORTUMAB VEDOTIN
     Indication: Transitional cell carcinoma metastatic
     Dates: start: 202404, end: 202411
  3. RAMIPRIL [Concomitant]
     Active Substance: RAMIPRIL
  4. JARDIANCE [Concomitant]
     Active Substance: EMPAGLIFLOZIN
  5. EZETIMIBE [Concomitant]
     Active Substance: EZETIMIBE
  6. BISOPROLOL [Concomitant]
     Active Substance: BISOPROLOL
  7. PRAVASTATIN [Concomitant]
     Active Substance: PRAVASTATIN
  8. ASPIRIN [Concomitant]
     Active Substance: ASPIRIN

REACTIONS (11)
  - Malignant neoplasm oligoprogression [Fatal]
  - Hepatic haemorrhage [Fatal]
  - Stress [Unknown]
  - Insomnia [Unknown]
  - Asthenia [Unknown]
  - Skin atrophy [Unknown]
  - Ecchymosis [Unknown]
  - Neuropathy peripheral [Unknown]
  - Shock haemorrhagic [Unknown]
  - Splenic haemorrhage [Fatal]
  - Tumour haemorrhage [Fatal]

NARRATIVE: CASE EVENT DATE: 20240601
